FAERS Safety Report 24384394 (Version 2)
Quarter: 2024Q4

REPORT INFORMATION
  Report Type: Spontaneous
  Country: AT (occurrence: AT)
  Receive Date: 20241001
  Receipt Date: 20241003
  Transmission Date: 20250115
  Serious: Yes (Other)
  Sender: INCYTE
  Company Number: AT-002147023-NVSC2024AT192665

PATIENT

DRUGS (4)
  1. RUXOLITINIB [Suspect]
     Active Substance: RUXOLITINIB
     Indication: Myelofibrosis
     Dosage: UNK
     Route: 065
  2. HUMAN RED BLOOD CELL [Concomitant]
     Active Substance: HUMAN RED BLOOD CELL
     Indication: Product used for unknown indication
     Dosage: UNK
     Route: 065
  3. FEDRATINIB [Concomitant]
     Active Substance: FEDRATINIB
     Indication: Product used for unknown indication
     Dosage: 200 MG, QD
     Route: 065
  4. NEUROBION [Concomitant]
     Active Substance: CYANOCOBALAMIN\PYRIDOXINE\THIAMINE
     Indication: Platelet disorder
     Dosage: 100 MG, QD
     Route: 065

REACTIONS (6)
  - Anaemia [Unknown]
  - Deep vein thrombosis [Unknown]
  - Rash papular [Unknown]
  - Nodular rash [Unknown]
  - Mental status changes [Unknown]
  - Thrombocytopenia [Unknown]
